FAERS Safety Report 14927755 (Version 2)
Quarter: 2018Q2

REPORT INFORMATION
  Report Type: Spontaneous
  Country: US (occurrence: US)
  Receive Date: 20180523
  Receipt Date: 20180530
  Transmission Date: 20180711
  Serious: No
  Sender: FDA-Public Use
  Company Number: US-PFIZER INC-2018208976

PATIENT
  Age: 55 Year
  Sex: Female
  Weight: 47.63 kg

DRUGS (2)
  1. EUCRISA [Suspect]
     Active Substance: CRISABOROLE
     Indication: SKIN EXFOLIATION
     Dosage: PUT A THIN LAYER OF CREAM ON HER FOREHEAD AND CHEEK BONES
     Dates: start: 20180511, end: 20180517
  2. EUCRISA [Suspect]
     Active Substance: CRISABOROLE
     Indication: DRY SKIN

REACTIONS (4)
  - Drug hypersensitivity [Unknown]
  - Erythema [Not Recovered/Not Resolved]
  - Urticaria [Not Recovered/Not Resolved]
  - Product use in unapproved indication [Unknown]

NARRATIVE: CASE EVENT DATE: 20170511
